FAERS Safety Report 13630254 (Version 7)
Quarter: 2018Q1

REPORT INFORMATION
  Report Type: Spontaneous
  Country: US (occurrence: US)
  Receive Date: 20170608
  Receipt Date: 20180207
  Transmission Date: 20180508
  Serious: Yes (Congenital Anomaly, Other)
  Sender: FDA-Public Use
  Company Number: PHEH2017US016970

PATIENT
  Sex: Male

DRUGS (2)
  1. ZOFRAN [Suspect]
     Active Substance: ONDANSETRON HYDROCHLORIDE
     Indication: FOETAL EXPOSURE DURING PREGNANCY
     Dosage: MOTHER DOSE: 01 DF, TID
     Route: 064
  2. ONDANSETRON [Suspect]
     Active Substance: ONDANSETRON
     Indication: FOETAL EXPOSURE DURING PREGNANCY
     Dosage: MOTHER^S DOSE: 08 MG, PRN
     Route: 064

REACTIONS (18)
  - Cleft palate [Unknown]
  - Ear pain [Unknown]
  - Speech disorder [Unknown]
  - Pierre Robin syndrome [Unknown]
  - Eustachian tube dysfunction [Unknown]
  - Pleural effusion [Unknown]
  - Phimosis [Unknown]
  - Injury [Unknown]
  - Skull malformation [Unknown]
  - Micrognathia [Unknown]
  - Prepuce redundant [Unknown]
  - Otitis media chronic [Unknown]
  - Foetal exposure during pregnancy [Unknown]
  - Jaundice neonatal [Unknown]
  - Cough [Unknown]
  - Poor feeding infant [Unknown]
  - Nasal flaring [Unknown]
  - Dysmorphism [Unknown]

NARRATIVE: CASE EVENT DATE: 20131019
